FAERS Safety Report 4417467-5 (Version None)
Quarter: 2004Q3

REPORT INFORMATION
  Report Type: 
  Country: None (occurrence: None)
  Receive Date: 20040803
  Receipt Date: 20040722
  Transmission Date: 20050211
  Serious: Yes (Death, Hospitalization)
  Sender: FDA-Public Use
  Company Number: T03-USA-00525-01

PATIENT
  Age: 2 Day
  Sex: Male
  Weight: 0.535 kg

DRUGS (2)
  1. INFASURF PRESERVATIVE FREE [Suspect]
     Indication: NEONATAL RESPIRATORY DISTRESS SYNDROME
     Dates: start: 20030131, end: 20030202
  2. EPINEPHRINE [Concomitant]

REACTIONS (2)
  - NEONATAL DISORDER [None]
  - PULMONARY HAEMORRHAGE [None]
